FAERS Safety Report 23268401 (Version 1)
Quarter: 2023Q4

REPORT INFORMATION
  Report Type: Spontaneous
  Country: US (occurrence: US)
  Receive Date: 20231206
  Receipt Date: 20231206
  Transmission Date: 20240110
  Serious: Yes (Other)
  Sender: FDA-Public Use
  Company Number: US-HORIZON THERAPEUTICS-HZN-2023-007935

PATIENT

DRUGS (2)
  1. KRYSTEXXA [Suspect]
     Active Substance: PEGLOTICASE
     Indication: Gout
     Dosage: UNK, EVERY 2 WEEKS
     Route: 042
     Dates: start: 20220219
  2. KRYSTEXXA [Suspect]
     Active Substance: PEGLOTICASE
     Dosage: UNK, EVERY 2 WEEKS
     Route: 042

REACTIONS (3)
  - Chronic kidney disease [Unknown]
  - Anaemia [Unknown]
  - Product dose omission issue [Unknown]
